FAERS Safety Report 6095379-1 (Version None)
Quarter: 2009Q1

REPORT INFORMATION
  Report Type: 
  Country: None (occurrence: None)
  Receive Date: 20090227
  Receipt Date: 20080320
  Transmission Date: 20090719
  Serious: No
  Sender: FDA-Public Use
  Company Number: A0716686A

PATIENT
  Age: 35 Year
  Sex: Female

DRUGS (5)
  1. LAMICTAL [Suspect]
     Indication: BIPOLAR DISORDER
     Dosage: 25MG SEE DOSAGE TEXT
     Route: 048
     Dates: start: 20080201, end: 20080317
  2. MAXZIDE [Concomitant]
  3. VERAPAMIL [Concomitant]
  4. PRILOSEC [Concomitant]
  5. ZYRTEC [Concomitant]

REACTIONS (4)
  - PSYCHOMOTOR HYPERACTIVITY [None]
  - RASH GENERALISED [None]
  - TONGUE BLISTERING [None]
  - URTICARIA [None]
